FAERS Safety Report 24269114 (Version 2)
Quarter: 2024Q3

REPORT INFORMATION
  Report Type: Report from Study
  Country: ES (occurrence: ES)
  Receive Date: 20240830
  Receipt Date: 20240831
  Transmission Date: 20241017
  Serious: Yes (Hospitalization)
  Sender: ABBVIE
  Company Number: ES-ABBVIE-5893138

PATIENT
  Sex: Female
  Weight: 54 kg

DRUGS (2)
  1. CARBIDOPA\LEVODOPA [Suspect]
     Active Substance: CARBIDOPA\LEVODOPA
     Indication: Parkinson^s disease
     Route: 050
     Dates: start: 20171107
  2. CARBIDOPA\LEVODOPA [Suspect]
     Active Substance: CARBIDOPA\LEVODOPA

REACTIONS (8)
  - Urinary tract infection [Not Recovered/Not Resolved]
  - Pyrexia [Unknown]
  - Dysphagia [Not Recovered/Not Resolved]
  - Device issue [Recovered/Resolved]
  - Incorrect product administration duration [Unknown]
  - Stoma site pain [Not Recovered/Not Resolved]
  - Device material issue [Not Recovered/Not Resolved]
  - Pyrexia [Recovered/Resolved]

NARRATIVE: CASE EVENT DATE: 20240101
